FAERS Safety Report 7982159-2 (Version None)
Quarter: 2011Q4

REPORT INFORMATION
  Report Type: 
  Country: None (occurrence: None)
  Receive Date: 20111215
  Receipt Date: 20111208
  Transmission Date: 20120403
  Serious: Yes (Hospitalization)
  Sender: FDA-Public Use
  Company Number: US-SANOFI-AVENTIS-2011SA080906

PATIENT
  Age: 55 Year
  Sex: Female

DRUGS (1)
  1. AMARYL [Suspect]
     Route: 048

REACTIONS (1)
  - LIMB INJURY [None]
